FAERS Safety Report 8017190-4 (Version None)
Quarter: 2012Q1

REPORT INFORMATION
  Report Type: 
  Country: None (occurrence: None)
  Receive Date: 20120102
  Receipt Date: 20111229
  Transmission Date: 20120608
  Serious: Yes (Death, Life-Threatening, Hospitalization, Other)
  Sender: FDA-Public Use
  Company Number: PHHY2011GB113250

PATIENT
  Age: 33 Year
  Sex: Male

DRUGS (3)
  1. INSULIN [Concomitant]
     Indication: CYSTIC FIBROSIS RELATED DIABETES
     Dosage: UNK
  2. STEROIDS NOS [Concomitant]
  3. ITRACONAZOLE [Suspect]
     Indication: BRONCHOPULMONARY ASPERGILLOSIS ALLERGIC

REACTIONS (4)
  - HYPOGLYCAEMIA [None]
  - LOSS OF CONSCIOUSNESS [None]
  - ADRENAL INSUFFICIENCY [None]
  - WITHDRAWAL SYNDROME [None]
